FAERS Safety Report 8380491-4 (Version None)
Quarter: 2012Q2

REPORT INFORMATION
  Report Type: 
  Country: None (occurrence: None)
  Receive Date: 20120523
  Receipt Date: 20120518
  Transmission Date: 20120825
  Serious: Yes (Hospitalization)
  Sender: FDA-Public Use
  Company Number: JP-GLAXOSMITHKLINE-B0801472A

PATIENT
  Sex: Male
  Weight: 60 kg

DRUGS (6)
  1. DOXAZOSIN MESYLATE [Concomitant]
     Indication: HYPERTENSION
     Dosage: 2MG PER DAY
     Route: 048
  2. VALTREX [Suspect]
     Indication: HERPES ZOSTER
     Dosage: 3000MG PER DAY
     Route: 048
     Dates: start: 20120424, end: 20120429
  3. MUCOSTA [Concomitant]
     Indication: GASTRIC ULCER
     Dosage: 300MG PER DAY
     Route: 048
  4. ALLOPURINOL [Concomitant]
     Indication: GOUT
     Dosage: 100MG PER DAY
     Route: 048
  5. LOXONIN [Concomitant]
     Indication: HERPES ZOSTER
     Dosage: 180MG PER DAY
     Route: 048
  6. AMLODIPINE BESYLATE [Concomitant]
     Indication: HYPERTENSION
     Dosage: 2.5G PER DAY
     Route: 048

REACTIONS (5)
  - ASTHENIA [None]
  - DYSARTHRIA [None]
  - RENAL FAILURE ACUTE [None]
  - NERVOUS SYSTEM DISORDER [None]
  - ANURIA [None]
